FAERS Safety Report 9608608 (Version 2)
Quarter: 2013Q4

REPORT INFORMATION
  Report Type: Spontaneous
  Country: US (occurrence: US)
  Receive Date: 20131009
  Receipt Date: 20131025
  Transmission Date: 20140711
  Serious: Yes (Other)
  Sender: FDA-Public Use
  Company Number: US-PFIZER INC-2013288937

PATIENT
  Age: 73 Year
  Sex: Female

DRUGS (2)
  1. LYRICA [Suspect]
     Indication: SPINAL PAIN
     Dosage: UNK
  2. CYMBALTA [Suspect]
     Indication: SPINAL PAIN
     Dosage: UNK

REACTIONS (5)
  - Tongue disorder [Unknown]
  - Swollen tongue [Unknown]
  - Hypertension [Unknown]
  - Malaise [Unknown]
  - Drug ineffective [Unknown]
